FAERS Safety Report 4805356-3 (Version None)
Quarter: 2005Q4

REPORT INFORMATION
  Report Type: 
  Country: None (occurrence: None)
  Receive Date: 20051018
  Receipt Date: 20051005
  Transmission Date: 20060501
  Serious: Yes (Death)
  Sender: FDA-Public Use
  Company Number: B0396342A

PATIENT
  Age: 34 Year
  Sex: Female

DRUGS (3)
  1. MYLERAN [Suspect]
  2. CYCLOPHOSPHAMIDE [Suspect]
  3. THIACETAZONE [Concomitant]

REACTIONS (5)
  - ENCEPHALOPATHY [None]
  - GENERAL PHYSICAL HEALTH DETERIORATION [None]
  - HEPATIC RUPTURE [None]
  - PERITONEAL HAEMORRHAGE [None]
  - VENOOCCLUSIVE LIVER DISEASE [None]
